FAERS Safety Report 6682993-5 (Version None)
Quarter: 2010Q2

REPORT INFORMATION
  Report Type: 
  Country: None (occurrence: None)
  Receive Date: 20100415
  Receipt Date: 20100319
  Transmission Date: 20101027
  Serious: Yes (Hospitalization)
  Sender: FDA-Public Use
  Company Number: JP-ROCHE-696651

PATIENT
  Sex: Female
  Weight: 53 kg

DRUGS (9)
  1. TOCILIZUMAB [Suspect]
     Indication: RHEUMATOID ARTHRITIS
     Route: 041
     Dates: start: 20081206, end: 20081206
  2. TOCILIZUMAB [Suspect]
     Route: 041
     Dates: start: 20090314, end: 20090314
  3. TOCILIZUMAB [Suspect]
     Route: 041
     Dates: start: 20090411, end: 20090411
  4. TOCILIZUMAB [Suspect]
     Route: 041
     Dates: start: 20090509, end: 20090509
  5. TOCILIZUMAB [Suspect]
     Route: 041
     Dates: start: 20090606
  6. ISCOTIN [Suspect]
     Indication: ANTIBIOTIC PROPHYLAXIS
     Route: 048
     Dates: start: 20081206, end: 20081222
  7. RIMATIL [Concomitant]
     Route: 048
  8. RHEUMATREX [Concomitant]
     Route: 048
  9. PREDONINE [Concomitant]
     Route: 048

REACTIONS (5)
  - ABDOMINAL DISCOMFORT [None]
  - HEADACHE [None]
  - LIVER FUNCTION TEST ABNORMAL [None]
  - PYREXIA [None]
  - RASH [None]
